FAERS Safety Report 13286152 (Version 1)
Quarter: 2017Q1

REPORT INFORMATION
  Report Type: Report from Study
  Country: US (occurrence: US)
  Receive Date: 20170301
  Receipt Date: 20170301
  Transmission Date: 20170428
  Serious: Yes (Death)
  Sender: FDA-Public Use
  Company Number: US-ACTELION-A-NJ2017-150218

PATIENT
  Age: 35 Year
  Sex: Female

DRUGS (5)
  1. LORAZEPAM. [Concomitant]
     Active Substance: LORAZEPAM
     Dosage: 1 DOSE AS DIRECTED
     Route: 048
     Dates: start: 20080724, end: 20170219
  2. DILANTIN [Concomitant]
     Active Substance: PHENYTOIN
     Dosage: 1 DOSE AS DIRECTED
     Route: 048
     Dates: start: 20080724, end: 20170219
  3. ARICEPT [Concomitant]
     Active Substance: DONEPEZIL HYDROCHLORIDE
     Dosage: 1 DOSE AS DIRECTED
     Route: 048
     Dates: start: 20080724, end: 20170219
  4. PROPRANOLOL [Concomitant]
     Active Substance: PROPRANOLOL HYDROCHLORIDE
     Dosage: 1 DOSE AS DIRECTED
     Route: 048
     Dates: start: 20080724, end: 20170219
  5. ZAVESCA [Suspect]
     Active Substance: MIGLUSTAT
     Indication: LIPIDOSIS
     Dosage: 100 MG, BID
     Route: 048
     Dates: start: 20101115, end: 20170219

REACTIONS (1)
  - Death [Fatal]

NARRATIVE: CASE EVENT DATE: 20170219
